FAERS Safety Report 9133420 (Version 8)
Quarter: 2015Q4

REPORT INFORMATION
  Report Type: Spontaneous
  Country: US (occurrence: US)
  Receive Date: 20130301
  Receipt Date: 20151006
  Transmission Date: 20160305
  Serious: Yes (Hospitalization)
  Sender: FDA-Public Use
  Company Number: US-PFIZER INC-2013070196

PATIENT
  Age: 54 Year
  Sex: Female
  Weight: 81 kg

DRUGS (5)
  1. EFFEXOR XR [Suspect]
     Active Substance: VENLAFAXINE HYDROCHLORIDE
     Indication: ANXIETY
  2. METFORMIN [Concomitant]
     Active Substance: METFORMIN HYDROCHLORIDE
     Indication: DIABETES MELLITUS
     Dosage: 500 MG, 2X/DAY
  3. EFFEXOR XR [Suspect]
     Active Substance: VENLAFAXINE HYDROCHLORIDE
     Indication: DEPRESSION
     Dosage: 75 MG, 3X/DAY
     Route: 048
     Dates: start: 2004
  4. EFFEXOR XR [Suspect]
     Active Substance: VENLAFAXINE HYDROCHLORIDE
     Indication: PANIC ATTACK
     Dosage: 75 MG, UNK
  5. DILTIAZEM [Concomitant]
     Active Substance: DILTIAZEM
     Indication: HEART RATE IRREGULAR
     Dosage: 120 MG, 1X/DAY

REACTIONS (12)
  - Hot flush [Unknown]
  - Headache [Unknown]
  - Head discomfort [Recovering/Resolving]
  - Palpitations [Not Recovered/Not Resolved]
  - Mobility decreased [Recovering/Resolving]
  - Tinnitus [Recovering/Resolving]
  - Drug withdrawal syndrome [Unknown]
  - Stress [Unknown]
  - Drug prescribing error [Unknown]
  - Hypertension [Unknown]
  - Therapeutic response unexpected [Unknown]
  - Dizziness [Unknown]
